FAERS Safety Report 20487085 (Version 13)
Quarter: 2025Q4

REPORT INFORMATION
  Report Type: Report from Study
  Country: EU (occurrence: EU)
  Receive Date: 20220217
  Receipt Date: 20251128
  Transmission Date: 20260117
  Serious: Yes (Death, Hospitalization, Other)
  Sender: ABBVIE
  Company Number: EU-ABBVIE-22K-062-4277446-00

PATIENT
  Age: 65 Year
  Sex: Male
  Weight: 80 kg

DRUGS (26)
  1. SKYRIZI [Suspect]
     Active Substance: RISANKIZUMAB-RZAA
     Indication: Psoriasis
     Route: 058
     Dates: start: 20200306, end: 202305
  2. BEZAFIBRATE [Concomitant]
     Active Substance: BEZAFIBRATE
     Indication: Product used for unknown indication
  3. ACETYLCYSTEINE [Concomitant]
     Active Substance: ACETYLCYSTEINE
     Indication: Product used for unknown indication
  4. RAMIPRIL [Concomitant]
     Active Substance: RAMIPRIL
     Indication: Product used for unknown indication
     Dosage: 55/22MCG, INHALATION SPRAY
  5. ASPIRIN [Concomitant]
     Active Substance: ASPIRIN
     Indication: Product used for unknown indication
  6. Mst [Concomitant]
     Indication: Product used for unknown indication
  7. IBUPROFEN [Concomitant]
     Active Substance: IBUPROFEN
     Indication: Product used for unknown indication
  8. CALCIUM\CHOLECALCIFEROL [Concomitant]
     Active Substance: CALCIUM\CHOLECALCIFEROL
     Indication: Product used for unknown indication
     Dosage: 400 IE/500 MG
     Dates: end: 202103
  9. ANORO ELLIPTA [Concomitant]
     Active Substance: UMECLIDINIUM BROMIDE\VILANTEROL TRIFENATATE
     Indication: Product used for unknown indication
     Dosage: 55/22 ?G HUB, 1-0-0-0
  10. PROLIA [Concomitant]
     Active Substance: DENOSUMAB
     Indication: Product used for unknown indication
     Route: 058
  11. Tavor [Concomitant]
     Indication: Product used for unknown indication
     Dosage: FORM STRENGTH: 2 MILLIGRAM
  12. Tavor [Concomitant]
     Indication: Product used for unknown indication
     Dosage: 0-0-0-1
  13. Anoran [Concomitant]
     Indication: Product used for unknown indication
     Dosage: INHALATION SPRAY
  14. FERINJECT [Concomitant]
     Active Substance: FERRIC CARBOXYMALTOSE
     Indication: Iron deficiency
     Route: 042
  15. PANTOZOL [Concomitant]
     Active Substance: PANTOPRAZOLE SODIUM
     Indication: Product used for unknown indication
     Dosage: 40 MILLIGRAM
     Route: 042
  16. PANTOPRAZOLE SODIUM [Concomitant]
     Active Substance: PANTOPRAZOLE SODIUM
     Indication: Product used for unknown indication
     Dosage: 40 MILLIGRAM 1-0-0-0
     Route: 048
  17. SPIRONOLACTONE [Concomitant]
     Active Substance: SPIRONOLACTONE
     Indication: Product used for unknown indication
     Dosage: FORM STRENGTH: 25 MILLIGRAM
  18. TORSEMIDE [Concomitant]
     Active Substance: TORSEMIDE
     Indication: Product used for unknown indication
     Dosage: FORM STRENGTH: 5 MILLIGRAM
  19. METAMIZOL [Concomitant]
     Active Substance: METAMIZOLE SODIUM
     Indication: Product used for unknown indication
     Dosage: TIME INTERVAL: 0.125 DAYS
  20. METAMIZOL [Concomitant]
     Active Substance: METAMIZOLE SODIUM
     Indication: Product used for unknown indication
     Dosage: IF NECESSARY UP TO 4 TIMES
  21. PREDNISOLONE [Concomitant]
     Active Substance: PREDNISOLONE
     Indication: Product used for unknown indication
     Dates: start: 20230831, end: 20230909
  22. MOVICOL [Concomitant]
     Active Substance: POLYETHYLENE GLYCOL 3350\POTASSIUM CHLORIDE\SODIUM BICARBONATE\SODIUM CHLORIDE
     Indication: Product used for unknown indication
     Dosage: SACHET
  23. BISOPROLOL [Concomitant]
     Active Substance: BISOPROLOL
     Indication: Product used for unknown indication
     Dosage: 1-0-0-0
  24. BEZAFIBRATE [Concomitant]
     Active Substance: BEZAFIBRATE
     Indication: Product used for unknown indication
     Dosage: 1-0-0-0
  25. ETORICOXIB [Concomitant]
     Active Substance: ETORICOXIB
     Indication: Product used for unknown indication
     Dosage: 1-0-0-0
  26. IVABRADINE [Concomitant]
     Active Substance: IVABRADINE
     Indication: Product used for unknown indication
     Dosage: 1-0-1-0

REACTIONS (79)
  - Death [Fatal]
  - Lung neoplasm malignant [Unknown]
  - Bone disorder [Unknown]
  - Chronic idiopathic pain syndrome [Not Recovered/Not Resolved]
  - Obesity [Unknown]
  - Acquired diaphragmatic eventration [Unknown]
  - Large intestine polyp [Recovered/Resolved]
  - Decreased vibratory sense [Unknown]
  - Granulocytes abnormal [Recovered/Resolved]
  - Lymphocyte count decreased [Recovered/Resolved]
  - Lymphoma [Unknown]
  - Hepatic steatosis [Not Recovered/Not Resolved]
  - Renal cyst [Unknown]
  - Thyroid cyst [Not Recovered/Not Resolved]
  - Carbon dioxide increased [Unknown]
  - Hypercalcaemia [Recovered/Resolved]
  - Thoracic vertebral fracture [Unknown]
  - Expiratory reserve volume decreased [Unknown]
  - Pulmonary mass [Unknown]
  - Metabolic disorder [Unknown]
  - Lung disorder [Unknown]
  - Bronchial carcinoma [Unknown]
  - Hypoventilation [Unknown]
  - COVID-19 [Recovered/Resolved]
  - Joint range of motion decreased [Unknown]
  - Cardiopulmonary exercise test abnormal [Unknown]
  - Pneumothorax [Unknown]
  - Abdominal wall mass [Unknown]
  - Dyspnoea [Unknown]
  - Dyspnoea exertional [Unknown]
  - Restrictive pulmonary disease [Unknown]
  - Parkinson^s disease [Not Recovered/Not Resolved]
  - Parkinsonism [Recovered/Resolved]
  - Muscular weakness [Unknown]
  - Prostatic disorder [Unknown]
  - General physical health deterioration [Unknown]
  - Prostatomegaly [Unknown]
  - Gamma-glutamyltransferase increased [Recovered/Resolved]
  - Intracranial calcification [Unknown]
  - Gait disturbance [Unknown]
  - Squamous cell carcinoma [Not Recovered/Not Resolved]
  - Constricted affect [Unknown]
  - Oral neoplasm [Not Recovered/Not Resolved]
  - Psoriasis [Unknown]
  - Lung carcinoma cell type unspecified stage 0 [Unknown]
  - Cerebral microangiopathy [Not Recovered/Not Resolved]
  - Cerebral atrophy [Not Recovered/Not Resolved]
  - Leukoencephalopathy [Not Recovered/Not Resolved]
  - Duodenitis [Recovered/Resolved]
  - Gastric ulcer [Recovered/Resolved]
  - Gastrooesophageal reflux disease [Not Recovered/Not Resolved]
  - Abdominal pain upper [Unknown]
  - Tachypnoea [Unknown]
  - Organising pneumonia [Recovered/Resolved]
  - Upper gastrointestinal haemorrhage [Recovered/Resolved]
  - Hypotension [Unknown]
  - Hyperhidrosis [Unknown]
  - Restrictive pulmonary disease [Unknown]
  - Iron deficiency anaemia [Recovered/Resolved]
  - Electrolyte imbalance [Unknown]
  - Duodenal ulcer [Unknown]
  - Fatigue [Unknown]
  - Dizziness [Unknown]
  - Anaemia [Recovered/Resolved]
  - Peripheral sensory neuropathy [Unknown]
  - Hyperlipidaemia [Unknown]
  - Tobacco abuse [Unknown]
  - Bronchitis chronic [Unknown]
  - Alcohol abuse [Unknown]
  - Cerebral atrophy [Unknown]
  - Hyposmia [Unknown]
  - Sciatica [Unknown]
  - Intertrigo [Unknown]
  - Cerebral atrophy [Unknown]
  - Polyneuropathy [Unknown]
  - Disturbance in attention [Unknown]
  - Varicose vein [Not Recovered/Not Resolved]
  - Osteoporosis [Unknown]
  - Intervertebral disc protrusion [Recovered/Resolved]

NARRATIVE: CASE EVENT DATE: 20200101
